FAERS Safety Report 6126986-5 (Version None)
Quarter: 2009Q1

REPORT INFORMATION
  Report Type: 
  Country: None (occurrence: None)
  Receive Date: 20090320
  Receipt Date: 20090311
  Transmission Date: 20090719
  Serious: Yes (Hospitalization, Disabling, Other)
  Sender: FDA-Public Use
  Company Number: US-MERCK-0811USA01210

PATIENT
  Age: 83 Year
  Sex: Female
  Weight: 86 kg

DRUGS (3)
  1. FOSAMAX [Suspect]
     Indication: OSTEOPOROSIS
     Route: 048
     Dates: start: 19990801, end: 20060206
  2. FOSAMAX [Suspect]
     Route: 065
     Dates: start: 20010501
  3. FOSAMAX [Suspect]
     Route: 065
     Dates: start: 20031201

REACTIONS (16)
  - ARTERIOSCLEROSIS [None]
  - ARTHROPATHY [None]
  - CEREBROVASCULAR ACCIDENT [None]
  - DEMENTIA ALZHEIMER'S TYPE [None]
  - DYSPEPSIA [None]
  - FACIAL PAIN [None]
  - HYPERTENSION [None]
  - INCORRECT DOSE ADMINISTERED [None]
  - JAW DISORDER [None]
  - ORAL PAIN [None]
  - PAIN IN JAW [None]
  - PATHOLOGICAL FRACTURE [None]
  - RHINITIS ALLERGIC [None]
  - TEMPOROMANDIBULAR JOINT SYNDROME [None]
  - TRANSIENT ISCHAEMIC ATTACK [None]
  - TRIGEMINAL NEURALGIA [None]
